FAERS Safety Report 8871372 (Version 1)
Quarter: 2012Q4

REPORT INFORMATION
  Report Type: 
  Country: US (occurrence: US)
  Receive Date: 20121023
  Receipt Date: 20121023
  Transmission Date: 20130627
  Serious: Yes (Hospitalization, Other)
  Sender: FDA-Public Use
  Company Number: US-ELI_LILLY_AND_COMPANY-US201210004445

PATIENT
  Age: 59 None
  Sex: Female
  Weight: 104.31 kg

DRUGS (10)
  1. BYDUREON [Suspect]
     Indication: TYPE 2 DIABETES MELLITUS
     Dosage: 2 mg, weekly (1/W)
     Route: 058
     Dates: start: 201203
  2. LEVOTHYROXINE [Concomitant]
     Indication: THYROID DISORDER
     Dosage: 75 ug, qd
     Route: 048
  3. PANTOPRAZOL [Concomitant]
     Indication: GASTROOESOPHAGEAL REFLUX DISEASE
     Dosage: 20 mg, qd
     Route: 048
  4. LISINOPRIL                              /USA/ [Concomitant]
     Indication: PROPHYLAXIS
     Dosage: 5 mg, qd
     Route: 048
     Dates: start: 201205
  5. AZELASTINE [Concomitant]
     Indication: SEASONAL ALLERGY
     Dosage: UNK, prn
  6. LUMIGAN [Concomitant]
     Indication: GLAUCOMA
     Dosage: 1 Gtt, each evening
     Route: 047
  7. BRIMONIDINE TARTRATE [Concomitant]
     Indication: GLAUCOMA
     Dosage: 1 Gtt, bid
     Route: 047
  8. ASPIRIN                                 /USA/ [Concomitant]
     Indication: PROPHYLAXIS
     Dosage: 81 mg, qd
     Route: 048
  9. FISH OIL [Concomitant]
     Indication: BLOOD CHOLESTEROL
     Dosage: 1000 mg, UNK
     Route: 048
  10. INSULIN [Concomitant]
     Indication: BLOOD GLUCOSE INCREASED

REACTIONS (9)
  - Vaginal haemorrhage [Recovered/Resolved]
  - Uterine cancer [Unknown]
  - Blood glucose increased [Unknown]
  - Injection site nodule [Recovering/Resolving]
  - Glycosylated haemoglobin increased [Unknown]
  - Blood pressure increased [Recovering/Resolving]
  - Impaired healing [Unknown]
  - Sinusitis [Not Recovered/Not Resolved]
  - Off label use [Recovered/Resolved]
